FAERS Safety Report 21749285 (Version 1)
Quarter: 2022Q4

REPORT INFORMATION
  Report Type: Spontaneous
  Country: US (occurrence: None)
  Receive Date: 20221217
  Receipt Date: 20221217
  Transmission Date: 20230113
  Serious: No
  Sender: FDA-Public Use
  Company Number: None

PATIENT
  Age: 65 Year
  Sex: Male
  Weight: 57.79 kg

DRUGS (30)
  1. LENALIDOMIDE [Suspect]
     Active Substance: LENALIDOMIDE
     Indication: Monoclonal gammopathy
     Dosage: 5MG 14D ON14D OFF ORAL?
     Route: 048
     Dates: start: 202211, end: 20221214
  2. ACETAMINOPHEN [Concomitant]
     Active Substance: ACETAMINOPHEN
  3. ASPIRIN [Concomitant]
     Active Substance: ASPIRIN
  4. AURYXIA [Concomitant]
     Active Substance: TETRAFERRIC TRICITRATE DECAHYDRATE
  5. BACTRIM [Concomitant]
     Active Substance: SULFAMETHOXAZOLE\TRIMETHOPRIM
  6. COMBIGAN [Concomitant]
     Active Substance: BRIMONIDINE TARTRATE\TIMOLOL MALEATE
  7. COREG [Concomitant]
     Active Substance: CARVEDILOL
  8. COZAAR [Concomitant]
     Active Substance: LOSARTAN POTASSIUM
  9. DEMADEX [Concomitant]
     Active Substance: TORSEMIDE
  10. FLOMAX [Concomitant]
     Active Substance: TAMSULOSIN HYDROCHLORIDE
  11. GABAPENTIN [Concomitant]
     Active Substance: GABAPENTIN
  12. HUMALOG [Concomitant]
     Active Substance: INSULIN LISPRO
  13. HYDRALAZINE [Concomitant]
     Active Substance: HYDRALAZINE HYDROCHLORIDE
  14. ISOSORBIDE [Concomitant]
     Active Substance: ISOSORBIDE
  15. LANTUS SOLOSTAR [Concomitant]
     Active Substance: INSULIN GLARGINE
  16. LIDOCAINE [Concomitant]
     Active Substance: LIDOCAINE
  17. METAMUCIL [Concomitant]
     Active Substance: PLANTAGO SEED
  18. METRONIDAZOLE [Concomitant]
     Active Substance: METRONIDAZOLE
  19. MIRALAX [Concomitant]
     Active Substance: POLYETHYLENE GLYCOL 3350
  20. MIRCERA [Concomitant]
     Active Substance: METHOXY POLYETHYLENE GLYCOL-EPOETIN BETA
  21. NITROSTAT [Concomitant]
     Active Substance: NITROGLYCERIN
  22. NORVASC [Concomitant]
     Active Substance: AMLODIPINE BESYLATE
  23. PRAVASTATIN [Concomitant]
     Active Substance: PRAVASTATIN
  24. PROCHLORPERAZINE [Concomitant]
     Active Substance: PROCHLORPERAZINE
  25. VITAMINS [Concomitant]
     Active Substance: VITAMINS
  26. RENVELA [Concomitant]
     Active Substance: SEVELAMER CARBONATE
  27. ROCALTROL [Concomitant]
     Active Substance: CALCITRIOL
  28. TAMSULOSIN [Concomitant]
     Active Substance: TAMSULOSIN
  29. TRAZODONE [Concomitant]
     Active Substance: TRAZODONE HYDROCHLORIDE
  30. VELPHORD [Concomitant]

REACTIONS (1)
  - Hospice care [None]

NARRATIVE: CASE EVENT DATE: 20221214
